FAERS Safety Report 6093761-X (Version None)
Quarter: 2009Q1

REPORT INFORMATION
  Report Type: 
  Country: None (occurrence: None)
  Receive Date: 20090226
  Receipt Date: 20090216
  Transmission Date: 20090719
  Serious: Yes (Other)
  Sender: FDA-Public Use
  Company Number: US-BAYER-200910195BCC

PATIENT
  Age: 60 Year
  Sex: Female
  Weight: 64 kg

DRUGS (16)
  1. ALEVE [Suspect]
     Indication: INTERVERTEBRAL DISC OPERATION
     Dates: end: 20070701
  2. ALEVE [Suspect]
     Dosage: UNIT DOSE: 220 MG
     Dates: start: 20070701, end: 20080901
  3. NAPROSYN [Suspect]
     Indication: PAIN
  4. NAPROSYN [Suspect]
  5. LOTREL [Concomitant]
  6. ACEBUTOLOL [Concomitant]
  7. BUSPAR [Concomitant]
  8. PROVIGIL [Concomitant]
  9. STRATTERA [Concomitant]
  10. PERIACTIN [Concomitant]
  11. PROMETRIUM [Concomitant]
  12. VIVELLE-DOT [Concomitant]
  13. VITAMINS [Concomitant]
  14. ZANTAC [Concomitant]
  15. TRAMADOL HCL [Concomitant]
  16. DICLOFENAC [Concomitant]
     Dates: end: 20080901

REACTIONS (3)
  - GASTRIC ULCER [None]
  - GASTROOESOPHAGEAL REFLUX DISEASE [None]
  - NAUSEA [None]
